FAERS Safety Report 6794143-5 (Version None)
Quarter: 2010Q2

REPORT INFORMATION
  Report Type: 
  Country: None (occurrence: None)
  Receive Date: 20100624
  Receipt Date: 20091013
  Transmission Date: 20101027
  Serious: Yes (Other)
  Sender: FDA-Public Use
  Company Number: US-PFIZER INC-2009242994

PATIENT
  Sex: Female

DRUGS (1)
  1. RELPAX [Suspect]
     Dosage: UNK

REACTIONS (2)
  - CORONARY ARTERY DISSECTION [None]
  - MYOCARDIAL INFARCTION [None]
